FAERS Safety Report 23886444 (Version 2)
Quarter: 2024Q3

REPORT INFORMATION
  Report Type: Report from Study
  Country: US (occurrence: US)
  Receive Date: 20240522
  Receipt Date: 20240820
  Transmission Date: 20241017
  Serious: Yes (Hospitalization, Other)
  Sender: MYLAN
  Company Number: US-MYLANLABS-2024M1046096

PATIENT
  Age: 73 Year
  Sex: Male
  Weight: 64.399 kg

DRUGS (12)
  1. CLOZAPINE [Suspect]
     Active Substance: CLOZAPINE
     Indication: Schizoaffective disorder
     Dosage: UNK
     Route: 065
  2. CLOZAPINE [Suspect]
     Active Substance: CLOZAPINE
     Dosage: 50 MILLIGRAM, BID (60 TABLETS FOR 30 DAYS REFILL 2)
     Route: 048
     Dates: start: 20240522
  3. CYMBALTA [Suspect]
     Active Substance: DULOXETINE HYDROCHLORIDE
     Indication: Schizoaffective disorder
     Dosage: 1 DOSAGE FORM, QD (30 CAPSULE FOR 30 DAYS, REFILL 2)
     Route: 048
     Dates: start: 20240522
  4. AMLODIPINE BESYLATE [Concomitant]
     Active Substance: AMLODIPINE BESYLATE
     Indication: Hypertension
     Dosage: 5 MILLIGRAM, QD (DAILY)
     Route: 048
     Dates: start: 20240305
  5. TAMSULOSIN HYDROCHLORIDE [Concomitant]
     Active Substance: TAMSULOSIN HYDROCHLORIDE
     Indication: Benign prostatic hyperplasia
     Dosage: 0.4 MILLIGRAM, QD
     Route: 048
     Dates: start: 20240222
  6. LEVOTHYROXINE SODIUM [Concomitant]
     Active Substance: LEVOTHYROXINE SODIUM
     Indication: Hypothyroidism
     Dosage: 0.050 MILLIGRAM, AM (PER DAY)
     Route: 048
     Dates: start: 20230725, end: 20240719
  7. VITAMIN D3 [Concomitant]
     Active Substance: CHOLECALCIFEROL
     Indication: Vitamin D deficiency
     Dosage: 1 DOSAGE FORM, QD (2000 UNITES PER DAY)
     Route: 048
  8. Contour [Concomitant]
     Dosage: USE 3XPER WEEK AND PRN (1 EACH FOR 90 DAY REFILL 5)
     Route: 065
     Dates: start: 20230123
  9. TAB A VITE [Concomitant]
     Dosage: 1 DOSAGE FORM, QD (DAILY 30 TABLETS FOR 30 DAYS REFILL 5)
     Route: 048
     Dates: start: 20230123
  10. GLUCERNA [Concomitant]
     Active Substance: AMINO ACIDS\DEXTROSE\ELECTROLYTES NOS\SOYBEAN OIL\VITAMINS
     Dosage: UNK, QD (DRINK 1 CAN ORAL DAILY 30 EACH FOR 30 DAYS REFILL 5))
     Route: 048
     Dates: start: 20230123
  11. DEBROX [Concomitant]
     Active Substance: CARBAMIDE PEROXIDE
     Dosage: 4 GTT DROPS, TID (FOR 5 DAYS PRIOR TO EAR FLUSHING)
     Route: 065
     Dates: start: 20220223
  12. FINASTERIDE [Concomitant]
     Active Substance: FINASTERIDE
     Indication: Benign prostatic hyperplasia
     Dosage: 5 MILLIGRAM, QD (PER DAY)
     Route: 048

REACTIONS (8)
  - Hospitalisation [Recovered/Resolved]
  - Hydronephrosis [Unknown]
  - Neutropenia [Recovered/Resolved]
  - Leukopenia [Unknown]
  - Leukocytosis [Recovered/Resolved]
  - Neutrophilia [Recovered/Resolved]
  - Urinary tract infection [Unknown]
  - Off label use [Unknown]

NARRATIVE: CASE EVENT DATE: 20231208
